FAERS Safety Report 10648057 (Version 1)
Quarter: 2014Q4

REPORT INFORMATION
  Report Type: Spontaneous
  Country: US (occurrence: None)
  Receive Date: 20141211
  Receipt Date: 20141211
  Transmission Date: 20150529
  Serious: Yes (Other)
  Sender: FDA-Public Use
  Company Number: None

PATIENT
  Age: 64 Year
  Sex: Male

DRUGS (1)
  1. XOLAIR [Suspect]
     Active Substance: OMALIZUMAB
     Indication: IDIOPATHIC URTICARIA
     Dosage: 300MG, EVERY 4 WEEKS, SUBCUTANEOUSLY
     Route: 058
     Dates: start: 20140826

REACTIONS (1)
  - Pericarditis [None]

NARRATIVE: CASE EVENT DATE: 20141201
